FAERS Safety Report 7747334-0 (Version None)
Quarter: 2011Q3

REPORT INFORMATION
  Report Type: 
  Country: None (occurrence: None)
  Receive Date: 20110913
  Receipt Date: 20110908
  Transmission Date: 20111222
  Serious: Yes (Hospitalization, Disabling, Other)
  Sender: FDA-Public Use
  Company Number: US-PFIZER INC-2011118631

PATIENT
  Sex: Male

DRUGS (2)
  1. CHANTIX [Suspect]
     Dosage: 1 MG, DAILY
     Dates: start: 20080501, end: 20080601
  2. CHANTIX [Suspect]
     Indication: SMOKING CESSATION THERAPY
     Dosage: UNK
     Dates: start: 20080212

REACTIONS (8)
  - INTENTIONAL OVERDOSE [None]
  - DEPRESSION [None]
  - ABNORMAL BEHAVIOUR [None]
  - SUICIDE ATTEMPT [None]
  - MENTAL DISORDER [None]
  - ANXIETY [None]
  - EMOTIONAL DISTRESS [None]
  - AGGRESSION [None]
